FAERS Safety Report 11631809 (Version 1)
Quarter: 2015Q4

REPORT INFORMATION
  Report Type: Spontaneous
  Country: US (occurrence: None)
  Receive Date: 20151013
  Receipt Date: 20151013
  Transmission Date: 20160304
  Serious: Yes (Disabling, Other)
  Sender: FDA-Public Use
  Company Number: None

PATIENT
  Age: 41 Year
  Sex: Female
  Weight: 104.33 kg

DRUGS (6)
  1. MULTIPLE VITAMIN [Concomitant]
     Active Substance: VITAMINS
  2. SOLU-MEDROL [Suspect]
     Active Substance: METHYLPREDNISOLONE SODIUM SUCCINATE
     Indication: BURSITIS
     Dosage: JOINT
  3. FISH OIL SUPPLEMENT [Concomitant]
  4. SOLU-MEDROL [Suspect]
     Active Substance: METHYLPREDNISOLONE SODIUM SUCCINATE
     Indication: PERIARTHRITIS
     Dosage: JOINT
  5. JOINT SUPPLEMENT [Concomitant]
  6. SOLU-MEDROL [Suspect]
     Active Substance: METHYLPREDNISOLONE SODIUM SUCCINATE
     Indication: ROTATOR CUFF SYNDROME
     Dosage: JOINT

REACTIONS (7)
  - Myalgia [None]
  - Arthropathy [None]
  - Flushing [None]
  - Headache [None]
  - Asthenia [None]
  - Musculoskeletal disorder [None]
  - Pain [None]

NARRATIVE: CASE EVENT DATE: 20150804
